FAERS Safety Report 6771694-0 (Version None)
Quarter: 2010Q2

REPORT INFORMATION
  Report Type: 
  Country: None (occurrence: None)
  Receive Date: 20100616
  Receipt Date: 20100325
  Transmission Date: 20101027
  Serious: No
  Sender: FDA-Public Use
  Company Number: US-ASTRAZENECA-2010SE16147

PATIENT
  Age: 72 Year
  Sex: Male

DRUGS (5)
  1. CANDESARTAN [Suspect]
     Route: 048
  2. ONGLYZA [Suspect]
     Route: 048
     Dates: start: 20100101
  3. INSULIN INSULATARD NPH NORDISK [Suspect]
     Route: 065
  4. FUROSEMIDE [Suspect]
     Route: 065
  5. METFORMIN HCL [Suspect]
     Route: 065

REACTIONS (3)
  - ATRIAL NATRIURETIC PEPTIDE INCREASED [None]
  - BLOOD CREATININE INCREASED [None]
  - GLYCOSYLATED HAEMOGLOBIN INCREASED [None]
